FAERS Safety Report 4530322-5 (Version None)
Quarter: 2004Q4

REPORT INFORMATION
  Report Type: 
  Country: None (occurrence: None)
  Receive Date: 20041217
  Receipt Date: 20041208
  Transmission Date: 20050328
  Serious: Yes (Other)
  Sender: FDA-Public Use
  Company Number: JP-ROCHE-388871

PATIENT
  Age: 8 Year
  Sex: Male
  Weight: 37.5 kg

DRUGS (5)
  1. CELLCEPT [Suspect]
     Route: 048
     Dates: start: 20021116, end: 20030109
  2. PREDNISOLONE [Concomitant]
  3. TACROLIMUS [Concomitant]
  4. BASILIXIMAB [Concomitant]
  5. MIZORIBINE [Concomitant]
     Dosage: MYCOPHENOLATE MOFETIL SWITCHED TO MIZORIBINE.

REACTIONS (3)
  - CALCULUS URETERIC [None]
  - HAEMATURIA [None]
  - URETERIC DILATATION [None]
